FAERS Safety Report 9837649 (Version 1)
Quarter: 2013Q4

REPORT INFORMATION
  Report Type: Spontaneous
  Country: US (occurrence: None)
  Receive Date: 20131205
  Receipt Date: 20131205
  Transmission Date: 20140711
  Serious: Yes (Hospitalization, Other)
  Sender: FDA-Public Use
  Company Number: 163-POMAL-13080087

PATIENT
  Age: 69 Year
  Sex: Male
  Weight: 117.94 kg

DRUGS (15)
  1. POMALYST [Suspect]
     Indication: PLASMA CELL MYELOMA
  2. KYPROLIS [Concomitant]
  3. DECADRON [Concomitant]
  4. POLYTRIM [Concomitant]
  5. IGG [Concomitant]
  6. FLUIDS [Concomitant]
  7. ACYCLOVIR [Concomitant]
  8. NORVASC [Concomitant]
  9. STEROIDS [Concomitant]
  10. OXYCODONE [Concomitant]
  11. METOPROLOL [Concomitant]
  12. ASPIRIN [Concomitant]
  13. ZOFRAN [Concomitant]
  14. PHENERGAN [Concomitant]
  15. INSULIN [Concomitant]

REACTIONS (3)
  - Plasma cell myeloma [None]
  - Renal failure acute [None]
  - Full blood count decreased [None]
